FAERS Safety Report 20370641 (Version 3)
Quarter: 2022Q1

REPORT INFORMATION
  Report Type: Spontaneous
  Country: ES (occurrence: ES)
  Receive Date: 20220124
  Receipt Date: 20220218
  Transmission Date: 20220424
  Serious: Yes (Hospitalization)
  Sender: FDA-Public Use
  Company Number: ES-CELGENE-ESP-20220104788

PATIENT
  Age: 81 Year
  Sex: Male

DRUGS (18)
  1. AZACITIDINE [Suspect]
     Active Substance: AZACITIDINE
     Indication: Myelodysplastic syndrome
     Dosage: 7 DAYS WITHIN THE FIRST 9 CALENDAR DAYS PER 28-DAY CYCLE (75 MG/M2,1 IN 1 D)
     Route: 058
     Dates: start: 20210531, end: 20211207
  2. VENETOCLAX [Suspect]
     Active Substance: VENETOCLAX
     Indication: Product used for unknown indication
     Route: 065
  3. DUTASTERIDE\TAMSULOSIN [Concomitant]
     Active Substance: DUTASTERIDE\TAMSULOSIN
     Indication: Benign prostatic hyperplasia
     Route: 048
  4. FAMOTIDINA [Concomitant]
     Indication: Hiatus hernia
     Dosage: 40 MILLIGRAM
     Route: 048
     Dates: start: 202104
  5. SULFAMETHOXAZOLE\TRIMETHOPRIM [Concomitant]
     Active Substance: SULFAMETHOXAZOLE\TRIMETHOPRIM
     Indication: Infection prophylaxis
     Dosage: 800/160 MG
     Route: 048
     Dates: start: 20210531
  6. FOLIC ACID [Concomitant]
     Active Substance: FOLIC ACID
     Indication: Vitamin supplementation
     Route: 048
     Dates: start: 20210531
  7. ONDANSETRON [Concomitant]
     Active Substance: ONDANSETRON
     Indication: Premedication
     Dosage: 8 MILLIGRAM
     Route: 048
     Dates: start: 20210531
  8. ARANESP [Concomitant]
     Active Substance: DARBEPOETIN ALFA
     Indication: Anaemia
     Route: 048
     Dates: start: 20210614
  9. ALLOPURINOL [Concomitant]
     Active Substance: ALLOPURINOL
     Indication: Prophylaxis
     Dosage: 300 MILLIGRAM
     Route: 048
     Dates: start: 20210531
  10. ACYCLOVIR [Concomitant]
     Active Substance: ACYCLOVIR
     Indication: Infection prophylaxis
     Dosage: 400 MILLIGRAM
     Route: 048
     Dates: start: 20210921
  11. PANTOPRAZOLE [Concomitant]
     Active Substance: PANTOPRAZOLE
     Indication: Nausea
     Dosage: 20 MILLIGRAM
     Route: 048
     Dates: start: 20220128
  12. LORAZEPAM [Concomitant]
     Active Substance: LORAZEPAM
     Indication: Insomnia
     Dosage: ONCE
     Route: 048
     Dates: start: 20220120, end: 20220120
  13. LORAZEPAM [Concomitant]
     Active Substance: LORAZEPAM
     Dosage: 1 MILLIGRAM
     Route: 048
     Dates: start: 20220203, end: 20220204
  14. BROMAZEPAM [Concomitant]
     Active Substance: BROMAZEPAM
     Indication: Insomnia
     Dosage: 1.5 MILLIGRAM
     Route: 048
     Dates: start: 20220203
  15. FRESUBIN PROTEIN ENERGY [Concomitant]
     Indication: Food interaction
     Dosage: 400 MILLILITER
     Route: 048
     Dates: start: 20220201
  16. ALMAGATE [Concomitant]
     Active Substance: ALMAGATE
     Indication: Gastrooesophageal reflux disease
     Dosage: 4.5 MILLIGRAM
     Route: 048
     Dates: start: 20220130
  17. LORMETAZEPAM [Concomitant]
     Active Substance: LORMETAZEPAM
     Indication: Insomnia
     Dosage: 1 MILLIGRAM
     Route: 048
     Dates: start: 20220205
  18. METOCLOPRAMIDE [Concomitant]
     Active Substance: METOCLOPRAMIDE
     Indication: Prophylaxis of nausea and vomiting
     Dosage: AS REQUIRED
     Route: 048
     Dates: start: 20220128

REACTIONS (1)
  - Back pain [Recovering/Resolving]

NARRATIVE: CASE EVENT DATE: 20220110
